FAERS Safety Report 6772605-4 (Version None)
Quarter: 2010Q2

REPORT INFORMATION
  Report Type: 
  Country: None (occurrence: None)
  Receive Date: 20100616
  Receipt Date: 20091203
  Transmission Date: 20101027
  Serious: No
  Sender: FDA-Public Use
  Company Number: US-ASTRAZENECA-2009SE30176

PATIENT
  Age: 74 Year
  Sex: Male
  Weight: 104.3 kg

DRUGS (4)
  1. PULMICORT RESPULES [Suspect]
     Indication: CHRONIC OBSTRUCTIVE PULMONARY DISEASE
     Route: 055
     Dates: start: 20091001, end: 20091127
  2. ALBUTEROL [Concomitant]
     Indication: CHRONIC OBSTRUCTIVE PULMONARY DISEASE
  3. PREDNISONE [Concomitant]
  4. COZAAR [Concomitant]
     Indication: CARDIAC DISORDER

REACTIONS (4)
  - AGEUSIA [None]
  - DYSPNOEA [None]
  - GLOSSODYNIA [None]
  - TEMPERATURE INTOLERANCE [None]
